FAERS Safety Report 7809065-8 (Version None)
Quarter: 2011Q4

REPORT INFORMATION
  Report Type: 
  Country: None (occurrence: None)
  Receive Date: 20111012
  Receipt Date: 20110927
  Transmission Date: 20120403
  Serious: Yes (Other)
  Sender: FDA-Public Use
  Company Number: US-ROCHE-787384

PATIENT
  Sex: Male
  Weight: 97.61 kg

DRUGS (2)
  1. ACCUTANE [Suspect]
     Indication: ACNE
     Route: 048
     Dates: start: 20000828, end: 20001212
  2. ACCUTANE [Suspect]
     Route: 048
     Dates: start: 20001212, end: 20010101

REACTIONS (10)
  - CROHN'S DISEASE [None]
  - INTESTINAL OBSTRUCTION [None]
  - HAEMORRHOIDS [None]
  - COLITIS [None]
  - PROCTITIS [None]
  - COLITIS ULCERATIVE [None]
  - ANXIETY [None]
  - INFLAMMATORY BOWEL DISEASE [None]
  - INTESTINAL HAEMORRHAGE [None]
  - IRRITABLE BOWEL SYNDROME [None]
